FAERS Safety Report 20600558 (Version 1)
Quarter: 2022Q1

REPORT INFORMATION
  Report Type: Spontaneous
  Country: JP (occurrence: JP)
  Receive Date: 20220316
  Receipt Date: 20220316
  Transmission Date: 20220423
  Serious: Yes (Hospitalization, Other)
  Sender: FDA-Public Use
  Company Number: JP-ALKEM LABORATORIES LIMITED-JP-ALKEM-2022-01919

PATIENT
  Age: 51 Year
  Sex: Female
  Weight: 36.8 kg

DRUGS (5)
  1. MESALAMINE [Suspect]
     Active Substance: MESALAMINE
     Indication: Crohn^s disease
     Dosage: 3000 MILLIGRAM PER DAY
     Route: 048
  2. PREDNISOLONE [Suspect]
     Active Substance: PREDNISOLONE
     Indication: Crohn^s disease
     Dosage: 40 MILLIGRAM
     Route: 048
  3. PREDNISOLONE [Suspect]
     Active Substance: PREDNISOLONE
     Dosage: 10 MILLIGRAM
     Route: 048
  4. PREDNISOLONE [Suspect]
     Active Substance: PREDNISOLONE
     Dosage: 20 MILLIGRAM
     Route: 048
  5. SULFAMETHOXAZOLE\TRIMETHOPRIM [Suspect]
     Active Substance: SULFAMETHOXAZOLE\TRIMETHOPRIM
     Indication: Crohn^s disease
     Dosage: 1 TABLET
     Route: 048

REACTIONS (2)
  - Drug reaction with eosinophilia and systemic symptoms [Not Recovered/Not Resolved]
  - Pulmonary mass [Not Recovered/Not Resolved]
